FAERS Safety Report 9638906 (Version 2)
Quarter: 2013Q4

REPORT INFORMATION
  Report Type: Spontaneous
  Country: US (occurrence: US)
  Receive Date: 20131022
  Receipt Date: 20131022
  Transmission Date: 20140711
  Serious: No
  Sender: FDA-Public Use
  Company Number: US-BRISTOL-MYERS SQUIBB COMPANY-19099373

PATIENT
  Age: 84 Year
  Sex: Female
  Weight: 49.43 kg

DRUGS (3)
  1. ELIQUIS [Suspect]
     Indication: ATRIAL FIBRILLATION
     Dosage: DOSE CONTINUED 2.5 MG BID
     Route: 048
  2. ATENOLOL [Concomitant]
  3. PRILOSEC [Concomitant]

REACTIONS (2)
  - Haemorrhage [Unknown]
  - Contusion [Unknown]
